FAERS Safety Report 19800918 (Version 1)
Quarter: 2021Q3

REPORT INFORMATION
  Report Type: Spontaneous
  Country: CN (occurrence: CN)
  Receive Date: 20210908
  Receipt Date: 20210908
  Transmission Date: 20211014
  Serious: Yes (Hospitalization, Other)
  Sender: FDA-Public Use
  Company Number: CN-SA-2021SA291247

PATIENT
  Age: 58 Year
  Sex: Female
  Weight: 51 kg

DRUGS (7)
  1. METFORMIN HYDROCHLORIDE. [Suspect]
     Active Substance: METFORMIN HYDROCHLORIDE
     Indication: DIABETES MELLITUS
     Dosage: 0.5 G, Q8H
     Route: 048
     Dates: start: 20210301, end: 20210428
  2. INSULIN LISPRO [Suspect]
     Active Substance: INSULIN LISPRO
     Indication: DIABETES MELLITUS
     Dosage: 8 IU, Q12H
     Route: 058
     Dates: start: 20210301, end: 20210428
  3. LINAGLIPTIN [Concomitant]
     Active Substance: LINAGLIPTIN
     Indication: PRODUCT USED FOR UNKNOWN INDICATION
     Dosage: 5 MG, QD
     Route: 065
  4. AMLODIPINE BESYLATE. [Concomitant]
     Active Substance: AMLODIPINE BESYLATE
     Indication: PRODUCT USED FOR UNKNOWN INDICATION
     Dosage: 5 MG, QD
     Route: 065
  5. NIFEDIPINE. [Concomitant]
     Active Substance: NIFEDIPINE
     Indication: PRODUCT USED FOR UNKNOWN INDICATION
     Dosage: 30 MG, QD
     Route: 065
     Dates: start: 20210430
  6. PIOGLITAZONE HYDROCHLORIDE. [Suspect]
     Active Substance: PIOGLITAZONE HYDROCHLORIDE
     Indication: DIABETES MELLITUS
     Dosage: 15 MG, QD
     Route: 048
     Dates: start: 20210301, end: 20210428
  7. ACARBOSE. [Suspect]
     Active Substance: ACARBOSE
     Indication: DIABETES MELLITUS
     Dosage: 100 MG, Q8H (THREE TIMES DAILY)
     Route: 048
     Dates: start: 20210301, end: 20210428

REACTIONS (14)
  - Nephrolithiasis [Unknown]
  - Gastric ulcer [Unknown]
  - Sinusitis [Unknown]
  - Chronic gastritis [Unknown]
  - Hypoglycaemia [Recovered/Resolved]
  - Anaemia [Unknown]
  - Stomatitis [Unknown]
  - Hypermagnesaemia [Unknown]
  - Duodenitis [Unknown]
  - Renal disorder [Unknown]
  - Hypoproteinaemia [Unknown]
  - Hypertriglyceridaemia [Unknown]
  - Lacunar infarction [Unknown]
  - Hypertension [Unknown]

NARRATIVE: CASE EVENT DATE: 2021
